FAERS Safety Report 9991699 (Version 1)
Quarter: 2014Q1

REPORT INFORMATION
  Report Type: Spontaneous
  Country: US (occurrence: US)
  Receive Date: 20140310
  Receipt Date: 20140310
  Transmission Date: 20141002
  Serious: No
  Sender: FDA-Public Use
  Company Number: US-BAYER-2014-035391

PATIENT
  Age: 71 Year
  Sex: Female
  Weight: 68.03 kg

DRUGS (2)
  1. ALEVE CAPLET [Suspect]
     Indication: BACK PAIN
     Dosage: 2 DF, BID
     Route: 048
     Dates: start: 20140304, end: 20140304
  2. CRESTOR [Concomitant]

REACTIONS (2)
  - Drug ineffective [None]
  - Extra dose administered [None]
